FAERS Safety Report 8224592-X (Version None)
Quarter: 2012Q1

REPORT INFORMATION
  Report Type: 
  Country: None (occurrence: None)
  Receive Date: 20120321
  Receipt Date: 20120314
  Transmission Date: 20120608
  Serious: Yes (Hospitalization)
  Sender: FDA-Public Use
  Company Number: US-AMGEN-USACT2012002638

PATIENT
  Age: 29 Year
  Sex: Female
  Weight: 75.7 kg

DRUGS (20)
  1. TAXOTERE [Concomitant]
     Dosage: UNK
     Dates: start: 20110725
  2. LORTAB [Concomitant]
     Dosage: 5 MG, QID
     Route: 048
  3. CELEXA [Concomitant]
  4. COUMADIN [Concomitant]
     Dosage: 1 MG, QD
     Route: 048
  5. MULTI-VITAMINS [Concomitant]
     Dosage: UNK
     Route: 048
  6. CALCIUM CARBONATE [Concomitant]
  7. MORPHINE SULFATE [Concomitant]
     Indication: FLANK PAIN
     Dosage: UNK UNK, PRN
     Route: 048
  8. AMBIEN [Concomitant]
     Dosage: 10 MG, PRN
     Route: 048
  9. ZOFRAN [Concomitant]
     Dosage: UNK UNK, PRN
     Route: 048
  10. BLINDED DENOSUMAB [Suspect]
     Indication: BREAST CANCER
     Dates: start: 20110801
  11. BLINDED PLACEBO [Suspect]
     Indication: BREAST CANCER
     Dates: start: 20110801
  12. NEULASTA [Suspect]
  13. EFFEXOR [Concomitant]
     Dosage: 37.5 MG, QD
     Route: 048
  14. FOLIC ACID [Concomitant]
     Dosage: UNK UNK, QD
     Route: 048
  15. COMPAZINE [Concomitant]
     Dosage: 10 MG, PRN
     Route: 048
  16. XANAX [Concomitant]
     Dosage: 1 MG, QD
     Route: 048
  17. VITAMIN B COMPLEX CAP [Concomitant]
     Dosage: UNK
     Route: 048
  18. MIRALAX [Concomitant]
     Dosage: UNK UNK, PRN
     Route: 048
  19. SENOKOT [Concomitant]
     Dosage: UNK UNK, QD
     Route: 048
  20. NAPROXEN (ALEVE) [Concomitant]

REACTIONS (5)
  - PYREXIA [None]
  - FLANK PAIN [None]
  - NEPHROLITHIASIS [None]
  - URINARY RETENTION [None]
  - DYSPNOEA [None]
